FAERS Safety Report 10966140 (Version 2)
Quarter: 2015Q2

REPORT INFORMATION
  Report Type: Spontaneous
  Country: JP (occurrence: JP)
  Receive Date: 20150330
  Receipt Date: 20150504
  Transmission Date: 20150821
  Serious: Yes (Death)
  Sender: FDA-Public Use
  Company Number: JP-MALLINCKRODT-T201501801

PATIENT
  Age: 53 Year
  Sex: Male
  Weight: 51 kg

DRUGS (4)
  1. METHADONE [Suspect]
     Active Substance: METHADONE HYDROCHLORIDE
     Indication: CANCER PAIN
     Dosage: 10MG, (DAILY DOSE 30MG)
     Route: 048
     Dates: start: 20131029, end: 20131110
  2. OXINORM [Concomitant]
     Active Substance: OXYCODONE HYDROCHLORIDE
     Dosage: 40MG, P.R.N.
     Route: 048
     Dates: start: 20131028
  3. METHADONE [Suspect]
     Active Substance: METHADONE HYDROCHLORIDE
     Dosage: 10MG, (DAILY DOSE 50MG)
     Route: 048
     Dates: start: 20131120, end: 20131125
  4. METHADONE [Suspect]
     Active Substance: METHADONE HYDROCHLORIDE
     Dosage: 10MG, (DAILY DOSE 40MG)
     Route: 048
     Dates: start: 20131111, end: 20131119

REACTIONS (1)
  - Nasal sinus cancer [Fatal]

NARRATIVE: CASE EVENT DATE: 20131125
